FAERS Safety Report 9161157 (Version 1)
Quarter: 2013Q1

REPORT INFORMATION
  Report Type: Report from Study
  Country: US (occurrence: US)
  Receive Date: 20130313
  Receipt Date: 20130313
  Transmission Date: 20140127
  Serious: Yes (Hospitalization)
  Sender: FDA-Public Use
  Company Number: US-CELGENEUS-163-C4047-13030834

PATIENT
  Age: 76 Year
  Sex: Male
  Weight: 91.71 kg

DRUGS (7)
  1. CC-4047 [Suspect]
     Indication: PLASMA CELL MYELOMA
     Dosage: 4 MILLIGRAM
     Route: 048
     Dates: start: 20120727
  2. CC-4047 [Suspect]
     Dosage: 4 MILLIGRAM
     Route: 048
     Dates: start: 20130212, end: 20130301
  3. DOXORUBICIN [Suspect]
     Indication: PLASMA CELL MYELOMA
     Route: 065
  4. DEXAMETHASONE [Suspect]
     Indication: PLASMA CELL MYELOMA
     Route: 065
  5. ZETIA [Concomitant]
     Indication: HYPERLIPIDAEMIA
     Route: 065
  6. CRESTOR [Concomitant]
     Indication: HYPERLIPIDAEMIA
     Route: 065
  7. PROVIGIL [Concomitant]
     Indication: PRODUCT USED FOR UNKNOWN INDICATION
     Route: 065

REACTIONS (6)
  - Hypoxia [Not Recovered/Not Resolved]
  - Dyspnoea exertional [None]
  - Respiratory failure [None]
  - Pneumonia [None]
  - Bronchospasm [None]
  - Upper respiratory tract infection [None]
